FAERS Safety Report 6939633-7 (Version None)
Quarter: 2010Q3

REPORT INFORMATION
  Report Type: 
  Country: None (occurrence: None)
  Receive Date: 20100825
  Receipt Date: 20100823
  Transmission Date: 20110219
  Serious: Yes (Death, Hospitalization, Other)
  Sender: FDA-Public Use
  Company Number: IT-BRISTOL-MYERS SQUIBB COMPANY-15242829

PATIENT
  Age: 77 Year
  Sex: Male

DRUGS (10)
  1. COUMADIN [Suspect]
     Indication: ATRIAL FIBRILLATION
     Route: 048
     Dates: start: 20100501, end: 20100813
  2. ASPIRIN [Suspect]
     Indication: PHLEBITIS
     Dosage: 100 MG GASTRORESISTANT ORAL TABS 1 TAB PER DAY
     Route: 048
  3. ASPIRIN [Suspect]
     Indication: ATRIAL FIBRILLATION
     Dosage: 100 MG GASTRORESISTANT ORAL TABS 1 TAB PER DAY
     Route: 048
  4. TAREG [Concomitant]
     Dosage: CAPS. 1 TAB DOSE INCREASED TO 80X2 ON 06-AUG-10
     Route: 048
  5. CARDURA [Concomitant]
     Dosage: TABS.
     Route: 048
  6. LASIX [Concomitant]
     Dosage: TABS. DOSE INCREASED TO 25X2 ON 06AUG10
     Route: 048
  7. TORVAST [Concomitant]
     Dosage: TABS.
     Route: 048
  8. CONGESCOR [Concomitant]
     Route: 048
  9. PEPTAZOL [Concomitant]
     Route: 048
  10. AVODART [Concomitant]
     Dosage: AVODART CAPS
     Route: 048

REACTIONS (3)
  - ATRIAL FIBRILLATION [None]
  - BLOOD PRESSURE INCREASED [None]
  - CEREBRAL HAEMORRHAGE [None]
